FAERS Safety Report 11330801 (Version 1)
Quarter: 2015Q3

REPORT INFORMATION
  Report Type: Spontaneous
  Country: US (occurrence: None)
  Receive Date: 20150731
  Receipt Date: 20150731
  Transmission Date: 20151125
  Serious: Yes (Other)
  Sender: FDA-Public Use
  Company Number: None

PATIENT
  Age: 53 Year
  Sex: Female

DRUGS (1)
  1. VOTRIENT [Suspect]
     Active Substance: PAZOPANIB HYDROCHLORIDE
     Indication: RENAL CANCER
     Route: 048
     Dates: start: 20150709

REACTIONS (5)
  - Hypertension [None]
  - Vomiting [None]
  - No therapeutic response [None]
  - Nausea [None]
  - Retching [None]

NARRATIVE: CASE EVENT DATE: 20150709
